FAERS Safety Report 5099226-6 (Version None)
Quarter: 2006Q3

REPORT INFORMATION
  Report Type: 
  Country: None (occurrence: None)
  Receive Date: 20060731
  Receipt Date: 20050928
  Transmission Date: 20061208
  Serious: Yes (Hospitalization)
  Sender: FDA-Public Use
  Company Number: 218148

PATIENT
  Age: 66 Year
  Sex: Female

DRUGS (3)
  1. HERCEPTIN [Suspect]
     Indication: BREAST CANCER
  2. PACLITAXEL [Concomitant]
  3. TAXOTERE [Concomitant]

REACTIONS (2)
  - HYPERSENSITIVITY [None]
  - LUNG INFILTRATION [None]
